FAERS Safety Report 10039374 (Version 1)
Quarter: 2014Q1

REPORT INFORMATION
  Report Type: Spontaneous
  Country: US (occurrence: None)
  Receive Date: 20140318
  Receipt Date: 20140318
  Transmission Date: 20141002
  Serious: Yes (Other)
  Sender: FDA-Public Use
  Company Number: 2014CT000010

PATIENT
  Age: 51 Year
  Sex: Male
  Weight: 65.32 kg

DRUGS (2)
  1. KORLYM [Suspect]
     Indication: CUSHING^S SYNDROME
     Route: 048
     Dates: start: 20131220
  2. KETOCONAZOLE [Concomitant]

REACTIONS (3)
  - Somnolence [None]
  - Upper extremity mass [None]
  - Fatigue [None]
